FAERS Safety Report 7410631-2 (Version None)
Quarter: 2011Q1

REPORT INFORMATION
  Report Type: 
  Country: None (occurrence: None)
  Receive Date: 20110302
  Receipt Date: 20110117
  Transmission Date: 20110831
  Serious: No
  Sender: FDA-Public Use
  Company Number: 025783

PATIENT
  Sex: Female
  Weight: 93.8946 kg

DRUGS (12)
  1. PREDNISONE [Concomitant]
  2. OMEPRAZOLE [Concomitant]
  3. METOPROLOL [Concomitant]
  4. CIMZIA [Suspect]
     Indication: RHEUMATOID ARTHRITIS
     Dosage: 200 MG 1X/28 DAYS, 200 MG/ML. ONE SHOT OF 100 MG EACH THIGH SUBCUTANEOUS
     Route: 058
     Dates: start: 20100101
  5. ENALAPRIL MALEATE [Concomitant]
  6. HYDROCHLOROTHIAZIDE [Concomitant]
  7. METHOTREXATE [Concomitant]
  8. CLONIDINE [Concomitant]
  9. CETIRIZINE HCL [Concomitant]
  10. FOLIC ACID [Concomitant]
  11. VITAMIN D [Concomitant]
  12. ZOLPIDEM [Concomitant]

REACTIONS (1)
  - ECZEMA [None]
